FAERS Safety Report 9219811 (Version 1)
Quarter: 2013Q2

REPORT INFORMATION
  Report Type: Spontaneous
  Country: US (occurrence: None)
  Receive Date: 20130405
  Receipt Date: 20130405
  Transmission Date: 20140414
  Serious: Yes (Hospitalization, Other)
  Sender: FDA-Public Use
  Company Number: 2013P1004205

PATIENT
  Age: 55 Year
  Sex: Male

DRUGS (2)
  1. AMLODIPINE [Suspect]
     Indication: INTENTIONAL OVERDOSE
  2. CARVEDILOL [Suspect]
     Indication: INTENTIONAL OVERDOSE

REACTIONS (4)
  - Intentional overdose [None]
  - Mental status changes [None]
  - Hypotension [None]
  - Bradycardia [None]
